FAERS Safety Report 24918045 (Version 3)
Quarter: 2025Q1

REPORT INFORMATION
  Report Type: Spontaneous
  Country: GB (occurrence: GB)
  Receive Date: 20250203
  Receipt Date: 20250304
  Transmission Date: 20250409
  Serious: Yes (Death, Other)
  Sender: TAKEDA
  Company Number: GB-TAKEDA-2025TUS010654

PATIENT
  Sex: Female

DRUGS (1)
  1. BRIGATINIB [Suspect]
     Active Substance: BRIGATINIB
     Indication: Product used for unknown indication

REACTIONS (5)
  - Pneumonia [Fatal]
  - Vocal cord paralysis [Not Recovered/Not Resolved]
  - Presyncope [Not Recovered/Not Resolved]
  - Gastrointestinal disorder [Unknown]
  - Abdominal distension [Unknown]
